FAERS Safety Report 10033401 (Version 3)
Quarter: 2016Q1

REPORT INFORMATION
  Report Type: Spontaneous
  Country: US (occurrence: US)
  Receive Date: 20140325
  Receipt Date: 20160202
  Transmission Date: 20160525
  Serious: No
  Sender: FDA-Public Use
  Company Number: US-UCBSA-107551

PATIENT
  Age: 46 Year
  Sex: Female
  Weight: 87 kg

DRUGS (8)
  1. VIMPAT [Concomitant]
     Active Substance: LACOSAMIDE
     Indication: SEIZURE
  2. KEPPRA XR [Suspect]
     Active Substance: LEVETIRACETAM
     Indication: SEIZURE
     Dosage: 500 MG, 4/DAY, STRENGTH 500 MG, EXPIRATION DATE: 29-FEB-2016.
     Route: 048
     Dates: start: 2007
  3. CORTISONE [Suspect]
     Active Substance: CORTISONE\HYDROCORTISONE
     Dates: start: 20131012
  4. TEMADOR [Concomitant]
     Active Substance: TEMAZEPAM
     Indication: BRAIN CANCER METASTATIC
     Dates: start: 2007, end: 2008
  5. TYLENOL [Concomitant]
     Active Substance: ACETAMINOPHEN
     Indication: PAIN
     Dosage: 10-18 PILLS EXTRA STRENGTH
     Route: 048
     Dates: start: 201402
  6. KEPPRA [Suspect]
     Active Substance: LEVETIRACETAM
     Indication: SEIZURE
     Dosage: TWICE DAILY
     Dates: start: 2007
  7. HYDROCODONE [Concomitant]
     Active Substance: HYDROCODONE
     Indication: PAIN
     Dosage: 10-325 , 1-2 TABLETS WHEN NEEDED, 240MG/DAY
  8. IRON SUPPLEMENT [Concomitant]
     Active Substance: IRON

REACTIONS (10)
  - Depression [Not Recovered/Not Resolved]
  - Back injury [Not Recovered/Not Resolved]
  - Seizure [Unknown]
  - Partial seizures [Recovered/Resolved]
  - Vertigo [Recovered/Resolved]
  - Tremor [Unknown]
  - Nausea [Unknown]
  - Hypoaesthesia [Not Recovered/Not Resolved]
  - Rotator cuff syndrome [Not Recovered/Not Resolved]
  - Musculoskeletal pain [Not Recovered/Not Resolved]

NARRATIVE: CASE EVENT DATE: 200706
